FAERS Safety Report 6241533-5 (Version None)
Quarter: 2009Q2

REPORT INFORMATION
  Report Type: 
  Country: None (occurrence: None)
  Receive Date: 20090623
  Receipt Date: 20050316
  Transmission Date: 20091009
  Serious: Yes (Hospitalization)
  Sender: FDA-Public Use
  Company Number: DE-ROCHE-368882

PATIENT
  Sex: Female
  Weight: 61 kg

DRUGS (67)
  1. DACLIZUMAB [Suspect]
     Route: 042
     Dates: start: 20040311, end: 20040311
  2. DACLIZUMAB [Suspect]
     Dosage: WEEK 2,4,6,8 VISIT
     Route: 042
     Dates: start: 20040326
  3. MYCOPHENOLATE MOFETIL [Suspect]
     Dosage: DRUG: CELL CEPT, 1 MG SEEMS TYPO.DOSE IS 1 GRAM
     Route: 048
     Dates: start: 20040311, end: 20040311
  4. MYCOPHENOLATE MOFETIL [Suspect]
     Dosage: 1 MG SEEMS TYPO.DOSE IS 1 GRAM
     Route: 048
     Dates: start: 20040312, end: 20040527
  5. MYCOPHENOLATE MOFETIL [Suspect]
     Route: 048
     Dates: start: 20040610, end: 20041210
  6. MYCOPHENOLATE MOFETIL [Suspect]
     Route: 048
     Dates: start: 20050315, end: 20050509
  7. MYCOPHENOLATE MOFETIL [Suspect]
     Route: 048
     Dates: start: 20050516, end: 20050612
  8. MYCOPHENOLATE MOFETIL [Suspect]
     Route: 048
     Dates: start: 20050613, end: 20050616
  9. MYCOPHENOLATE MOFETIL [Suspect]
     Route: 048
     Dates: start: 20050617, end: 20050626
  10. MYCOPHENOLATE MOFETIL [Suspect]
     Route: 048
     Dates: start: 20050627, end: 20050923
  11. TACROLIMUS [Suspect]
     Route: 048
     Dates: start: 20050620, end: 20051011
  12. SIROLIMUS [Suspect]
     Dosage: DRUG: RAPAMUNE
     Route: 048
     Dates: start: 20040311
  13. SIROLIMUS [Suspect]
     Route: 048
     Dates: start: 20040422
  14. SIROLIMUS [Suspect]
     Route: 048
     Dates: start: 20040423
  15. SIROLIMUS [Suspect]
     Route: 048
     Dates: start: 20041011, end: 20041211
  16. SIROLIMUS [Suspect]
     Route: 048
     Dates: start: 20050916
  17. SIROLIMUS [Suspect]
     Route: 048
     Dates: start: 20060530
  18. SIROLIMUS [Suspect]
     Route: 048
     Dates: start: 20070316
  19. PREDNISOLONE [Suspect]
     Route: 042
     Dates: start: 20040311, end: 20040313
  20. PREDNISOLONE [Suspect]
     Route: 042
     Dates: start: 20041018, end: 20041021
  21. PREDNISOLONE [Suspect]
     Route: 042
     Dates: start: 20050617, end: 20050620
  22. PREDNISOLONE [Suspect]
     Route: 042
     Dates: start: 20050902, end: 20050905
  23. DECORTIN [Suspect]
     Route: 048
     Dates: start: 20040311
  24. DECORTIN [Suspect]
     Route: 048
     Dates: start: 20040327
  25. DECORTIN [Suspect]
     Route: 048
     Dates: start: 20040407
  26. DECORTIN [Suspect]
     Route: 048
     Dates: start: 20040427
  27. DECORTIN [Suspect]
     Route: 048
     Dates: start: 20041027, end: 20041212
  28. DECORTIN [Suspect]
     Route: 048
  29. CYCLOSPORINE [Suspect]
     Dosage: DRUG: CYCLOSPORIN
     Route: 048
     Dates: start: 20041215, end: 20050621
  30. PREDNISOLONE [Suspect]
     Route: 048
     Dates: start: 20040313
  31. PREDNISOLONE [Suspect]
     Route: 048
     Dates: start: 20040427
  32. PREDNISOLONE [Suspect]
     Route: 048
     Dates: start: 20041027, end: 20041212
  33. PREDNISOLONE [Suspect]
     Route: 048
     Dates: start: 20050314
  34. ACTRAPID [Concomitant]
     Route: 058
     Dates: start: 20041213, end: 20041222
  35. AMPHOTERICIN B [Concomitant]
     Route: 060
     Dates: start: 20040312, end: 20040429
  36. CEFUROXIME [Concomitant]
     Route: 048
     Dates: start: 20050224, end: 20050101
  37. CIPROBAY [Concomitant]
     Route: 048
     Dates: start: 20040407, end: 20040416
  38. CIPROBAY [Concomitant]
     Route: 048
     Dates: start: 20040529, end: 20040618
  39. CIPROBAY [Concomitant]
     Route: 048
     Dates: start: 20041014, end: 20041021
  40. CIPROBAY [Concomitant]
     Route: 048
     Dates: start: 20041210, end: 20050111
  41. CIPROBAY [Concomitant]
     Route: 048
     Dates: start: 20050511, end: 20050617
  42. CIPROBAY [Concomitant]
     Route: 048
     Dates: start: 20051013, end: 20051024
  43. CIPROBAY [Concomitant]
     Route: 048
     Dates: start: 20060311, end: 20060701
  44. METRONIDAZOLE HCL [Concomitant]
     Route: 042
     Dates: start: 20051012
  45. METRONIDAZOLE HCL [Concomitant]
     Route: 048
     Dates: end: 20051001
  46. COTRIM [Concomitant]
     Route: 048
     Dates: start: 20040317, end: 20040424
  47. CYMEVEN [Concomitant]
     Route: 042
     Dates: start: 20040311, end: 20040315
  48. CYMEVEN [Concomitant]
     Route: 042
     Dates: start: 20041212
  49. DILATREND [Concomitant]
     Route: 048
     Dates: start: 20040311
  50. HYDROCORTISON [Suspect]
     Route: 042
     Dates: start: 20041212
  51. LOCOL [Concomitant]
     Route: 048
     Dates: start: 20050612
  52. LOCOL [Concomitant]
     Route: 048
     Dates: start: 20050831, end: 20060307
  53. NORVASC [Concomitant]
     Route: 048
     Dates: start: 20040311, end: 20040603
  54. NORVASC [Concomitant]
     Route: 048
     Dates: start: 20040607, end: 20040910
  55. ROCEPHIN [Concomitant]
     Route: 042
     Dates: start: 20040311, end: 20040320
  56. ROCEPHIN [Concomitant]
     Route: 042
     Dates: start: 20041210, end: 20041220
  57. ROCEPHIN [Concomitant]
     Route: 042
     Dates: start: 20051012
  58. SIMVABETA [Concomitant]
     Route: 048
     Dates: start: 20050315, end: 20050612
  59. SIMVASTATIN [Concomitant]
     Route: 048
     Dates: start: 20060307
  60. SORTIS [Concomitant]
     Route: 048
     Dates: start: 20040313
  61. SORTIS [Concomitant]
     Route: 048
     Dates: start: 20040323, end: 20050314
  62. VALCYTE [Concomitant]
     Route: 048
     Dates: start: 20040315, end: 20040919
  63. PRIMAXIN [Concomitant]
     Route: 042
     Dates: start: 20040423, end: 20040427
  64. PRIMAXIN [Concomitant]
     Route: 042
     Dates: start: 20040505, end: 20040512
  65. PRIMAXIN [Concomitant]
     Route: 042
     Dates: start: 20040526, end: 20040530
  66. PRIMAXIN [Concomitant]
     Route: 042
     Dates: start: 20050509, end: 20050512
  67. PRIMAXIN [Concomitant]
     Route: 042
     Dates: start: 20060307, end: 20060312

REACTIONS (5)
  - GASTROENTERITIS [None]
  - PYELONEPHRITIS [None]
  - SQUAMOUS CELL CARCINOMA OF SKIN [None]
  - URINARY TRACT INFECTION [None]
  - UROSEPSIS [None]
